FAERS Safety Report 4823838-5 (Version None)
Quarter: 2005Q4

REPORT INFORMATION
  Report Type: 
  Country: None (occurrence: None)
  Receive Date: 20051109
  Receipt Date: 20050923
  Transmission Date: 20060501
  Serious: Yes (Other)
  Sender: FDA-Public Use
  Company Number: PHEH2005US10620

PATIENT
  Age: 60 Year
  Sex: Female

DRUGS (5)
  1. VIVELLE-DOT [Suspect]
     Indication: MENOPAUSE
     Dosage: 0.05 MG
     Route: 062
     Dates: start: 19980101
  2. DARVOCET-N 100 [Concomitant]
     Indication: PAIN
  3. TEMAZEPAM [Concomitant]
  4. FLONASE [Concomitant]
  5. NAPHCON [Concomitant]

REACTIONS (8)
  - CATARACT [None]
  - DRY EYE [None]
  - EYE OEDEMA [None]
  - EYE PAIN [None]
  - FIBROMYALGIA [None]
  - RETINAL PIGMENTATION [None]
  - VISION BLURRED [None]
  - VISUAL DISTURBANCE [None]
